FAERS Safety Report 19442975 (Version 7)
Quarter: 2022Q1

REPORT INFORMATION
  Report Type: Report from Study
  Country: MX (occurrence: MX)
  Receive Date: 20210621
  Receipt Date: 20220226
  Transmission Date: 20220424
  Serious: Yes (Hospitalization, Other)
  Sender: FDA-Public Use
  Company Number: NVSC2021MX133647

PATIENT
  Age: 25 Year
  Sex: Male
  Weight: 90 kg

DRUGS (13)
  1. COSENTYX [Suspect]
     Active Substance: SECUKINUMAB
     Indication: Ankylosing spondylitis
     Dosage: 150 MG, QMO
     Route: 058
     Dates: start: 2018, end: 2019
  2. COSENTYX [Suspect]
     Active Substance: SECUKINUMAB
     Dosage: 150 MG, QW
     Route: 058
     Dates: start: 20190604
  3. COSENTYX [Suspect]
     Active Substance: SECUKINUMAB
     Dosage: 150 MG, QW (FOR 5 WEEKS)
     Route: 058
     Dates: start: 201911
  4. COSENTYX [Suspect]
     Active Substance: SECUKINUMAB
     Dosage: 150 MG, QMO
     Route: 058
     Dates: end: 202002
  5. COSENTYX [Suspect]
     Active Substance: SECUKINUMAB
     Dosage: 150 MG, QW (FOR 5 WEEKS)
     Route: 058
     Dates: start: 20210630
  6. COSENTYX [Suspect]
     Active Substance: SECUKINUMAB
     Dosage: 150 MG, QW (FOR 5 WEEKS)
     Route: 058
     Dates: start: 20210804
  7. COSENTYX [Suspect]
     Active Substance: SECUKINUMAB
     Dosage: 150 MG, QMO (1 PEN) (1 YEAR AGO)
     Route: 058
  8. COSENTYX [Suspect]
     Active Substance: SECUKINUMAB
     Dosage: UNK, QMO (2 PENS) (DOSE INCREASED)
     Route: 058
     Dates: start: 202201
  9. STADIUM [Concomitant]
     Indication: Inflammation
     Dosage: UNK
     Route: 065
  10. NORFLEX PLUS [Concomitant]
     Indication: Ankylosing spondylitis
     Dosage: 1 DOSAGE FORM, Q12H (4 MONTHS AGO)
     Route: 048
  11. MALIVAL COMPUESTO [Concomitant]
     Indication: Ankylosing spondylitis
     Dosage: 1 DOSAGE FORM, Q12H (4 MONTHS AGO)
     Route: 048
  12. TRAMADOL HYDROCHLORIDE [Concomitant]
     Active Substance: TRAMADOL HYDROCHLORIDE
     Indication: Ankylosing spondylitis
     Dosage: 1 DOSAGE FORM, Q24H  (4 MONTHS AGO) (DROPS)
     Route: 048
  13. PREGABALIN [Concomitant]
     Active Substance: PREGABALIN
     Indication: Ankylosing spondylitis
     Dosage: 1 DOSAGE FORM (AT NIGHT) (4 MONTHS AGO)
     Route: 048

REACTIONS (12)
  - Ankylosing spondylitis [Recovered/Resolved]
  - Neuropathy peripheral [Not Recovered/Not Resolved]
  - Pain [Unknown]
  - Asthenia [Unknown]
  - Malaise [Not Recovered/Not Resolved]
  - Sacroiliitis [Not Recovered/Not Resolved]
  - Back pain [Not Recovered/Not Resolved]
  - Arthritis [Not Recovered/Not Resolved]
  - Discomfort [Unknown]
  - Product availability issue [Unknown]
  - Device ineffective [Not Recovered/Not Resolved]
  - Inappropriate schedule of product administration [Unknown]

NARRATIVE: CASE EVENT DATE: 20210604
